FAERS Safety Report 21326735 (Version 3)
Quarter: 2022Q4

REPORT INFORMATION
  Report Type: Spontaneous
  Country: US (occurrence: US)
  Receive Date: 20220913
  Receipt Date: 20221125
  Transmission Date: 20230113
  Serious: Yes (Hospitalization, Disabling, Other)
  Sender: FDA-Public Use
  Company Number: US-ALIMERA SCIENCES LIMITED-US-A16013-22-000217

PATIENT
  Age: 53 Year
  Sex: Female

DRUGS (2)
  1. ILUVIEN [Suspect]
     Active Substance: FLUOCINOLONE ACETONIDE
     Indication: Diabetic retinopathy
     Dosage: 0.25 MICROGRAM, QD, -RIGHT EYE
     Route: 031
     Dates: start: 202104
  2. ILUVIEN [Suspect]
     Active Substance: FLUOCINOLONE ACETONIDE
     Indication: Macular degeneration

REACTIONS (30)
  - Blindness [Unknown]
  - COVID-19 [Unknown]
  - COVID-19 pneumonia [Unknown]
  - Diplopia [Unknown]
  - Glaucoma [Unknown]
  - Cataract [Unknown]
  - Impaired driving ability [Unknown]
  - Impaired quality of life [Unknown]
  - Corneal abrasion [Unknown]
  - Depression [Unknown]
  - Halo vision [Unknown]
  - Anxiety [Unknown]
  - Lacrimation increased [Unknown]
  - Vertigo [Unknown]
  - Nausea [Unknown]
  - Dizziness [Unknown]
  - Altered visual depth perception [Unknown]
  - Glare [Unknown]
  - Pain [Unknown]
  - Photophobia [Unknown]
  - Photopsia [Unknown]
  - Device dislocation [Unknown]
  - Vision blurred [Unknown]
  - Headache [Unknown]
  - Eye irritation [Unknown]
  - Intraocular pressure increased [Unknown]
  - Vitreous floaters [Unknown]
  - Visual field defect [Unknown]
  - Eye pain [Unknown]
  - Cataract subcapsular [Unknown]

NARRATIVE: CASE EVENT DATE: 20220101
